FAERS Safety Report 20884006 (Version 1)
Quarter: 2022Q2

REPORT INFORMATION
  Report Type: Spontaneous
  Country: IT (occurrence: IT)
  Receive Date: 20220527
  Receipt Date: 20220527
  Transmission Date: 20220721
  Serious: Yes (Hospitalization)
  Sender: FDA-Public Use
  Company Number: None

PATIENT
  Age: 54 Year
  Sex: Female

DRUGS (6)
  1. BISOPROLOL FUMARATE [Suspect]
     Active Substance: BISOPROLOL FUMARATE
     Indication: Hypertension
     Dosage: UNIT DOSE: 1.25 MG, FREQUENCY : 1 DAYS
     Dates: start: 20210101, end: 20220125
  2. DRONEDARONE [Suspect]
     Active Substance: DRONEDARONE
     Indication: Atrial fibrillation
     Dosage: UNIT DOSE: 1 DF, FREQUENCY : 1 DAYS
     Dates: start: 20210101, end: 20220125
  3. RAMIPRIL [Concomitant]
     Active Substance: RAMIPRIL
  4. COUMADIN [Concomitant]
     Active Substance: WARFARIN SODIUM
  5. POTASSIUM CHLORIDE [Concomitant]
     Active Substance: POTASSIUM CHLORIDE
  6. FUROSEMIDE [Concomitant]
     Active Substance: FUROSEMIDE

REACTIONS (3)
  - Toxicity to various agents [Unknown]
  - Palpitations [Unknown]
  - Tachycardia [Unknown]

NARRATIVE: CASE EVENT DATE: 20220113
